FAERS Safety Report 7861957-X (Version None)
Quarter: 2011Q4

REPORT INFORMATION
  Report Type: 
  Country: None (occurrence: None)
  Receive Date: 20111026
  Receipt Date: 20111011
  Transmission Date: 20120403
  Serious: Yes (Other)
  Sender: FDA-Public Use
  Company Number: FK201102306

PATIENT
  Age: 82 Year
  Sex: Female

DRUGS (4)
  1. OXALIPLATIN [Suspect]
     Indication: RECTAL CANCER
     Dosage: 75, MG/BODY
  2. BEVACIZUMAB (BEVACIZUMAB) (BEVACIZUMAB) [Suspect]
     Indication: RECTAL CANCER
     Dosage: 180, MG/BODY
  3. FLUOROURACIL [Suspect]
     Indication: RECTAL CANCER
     Dosage: 400, MG/BODY
  4. LEUCOVORIN CALCIUM [Suspect]
     Indication: RECTAL CANCER
     Dosage: 225, MG/BODY

REACTIONS (6)
  - PROTEINURIA [None]
  - CONDITION AGGRAVATED [None]
  - HYPOAESTHESIA [None]
  - NEUTROPENIA [None]
  - HYPERTENSION [None]
  - LEUKOPENIA [None]
